FAERS Safety Report 5089653-5 (Version None)
Quarter: 2006Q3

REPORT INFORMATION
  Report Type: 
  Country: None (occurrence: None)
  Receive Date: 20060822
  Receipt Date: 20060814
  Transmission Date: 20061208
  Serious: Yes (Hospitalization)
  Sender: FDA-Public Use
  Company Number: 200610232BBE

PATIENT
  Age: 68 Year
  Sex: Female

DRUGS (4)
  1. GAMUNEX [Suspect]
     Indication: SPLEEN DISORDER
     Dosage: Q1MON, INTRAVENOUS
     Route: 042
     Dates: start: 20060615
  2. GAMUNEX [Suspect]
     Indication: SPLEEN DISORDER
     Dosage: Q1MON, INTRAVENOUS
     Route: 042
     Dates: start: 20060718
  3. GAMUNEX [Suspect]
     Indication: SPLEEN DISORDER
     Dosage: Q1MON, INTRAVENOUS
     Route: 042
     Dates: start: 20060718
  4. GAMUNEX [Suspect]

REACTIONS (5)
  - ANOREXIA [None]
  - GASTROENTERITIS VIRAL [None]
  - INFLUENZA LIKE ILLNESS [None]
  - NAUSEA [None]
  - WEIGHT DECREASED [None]
